APPROVED DRUG PRODUCT: SODIUM FERRIC GLUCONATE COMPLEX IN SUCROSE
Active Ingredient: SODIUM FERRIC GLUCONATE COMPLEX
Strength: EQ 62.5MG IRON/5ML (EQ 12.5MG IRON/ML)
Dosage Form/Route: INJECTABLE;INJECTION
Application: A078215 | Product #001 | TE Code: AB
Applicant: HIKMA PHARMACEUTICALS USA INC
Approved: Mar 31, 2011 | RLD: No | RS: No | Type: RX